FAERS Safety Report 8472158-9 (Version None)
Quarter: 2012Q2

REPORT INFORMATION
  Report Type: 
  Country: None (occurrence: None)
  Receive Date: 20120627
  Receipt Date: 20120619
  Transmission Date: 20120825
  Serious: Yes (Hospitalization, Disabling, Other)
  Sender: FDA-Public Use
  Company Number: US-MERCK-1203USA03419

PATIENT
  Age: 56 Year
  Sex: Female

DRUGS (7)
  1. FOSAMAX [Suspect]
     Indication: OSTEOPOROSIS
     Route: 048
     Dates: start: 19970101, end: 20070101
  2. ALENDRONATE SODIUM [Suspect]
     Indication: OSTEOPENIA
     Route: 048
     Dates: start: 19970101, end: 20070101
  3. BONIVA [Suspect]
     Indication: PROPHYLAXIS
     Route: 048
     Dates: start: 20070101, end: 20100101
  4. ALENDRONATE SODIUM [Suspect]
     Indication: OSTEOPOROSIS
     Route: 048
     Dates: start: 19970101, end: 20070101
  5. FOSAMAX [Suspect]
     Route: 048
     Dates: start: 20051113
  6. FOSAMAX [Suspect]
     Indication: OSTEOPENIA
     Route: 048
     Dates: start: 19970101, end: 20070101
  7. FOSAMAX [Suspect]
     Route: 048
     Dates: start: 20051113

REACTIONS (31)
  - FEMUR FRACTURE [None]
  - CYSTOCELE [None]
  - EXCORIATION [None]
  - SLEEP APNOEA SYNDROME [None]
  - LIMB ASYMMETRY [None]
  - BONE DISORDER [None]
  - RECTOCELE [None]
  - ADVERSE EVENT [None]
  - ANAEMIA [None]
  - ARTHRITIS [None]
  - HYPERTENSION [None]
  - DYSPEPSIA [None]
  - ARTHROPOD STING [None]
  - HYPOTHYROIDISM [None]
  - HYPERCHOLESTEROLAEMIA [None]
  - HYDRONEPHROSIS [None]
  - AUTOIMMUNE THYROIDITIS [None]
  - VARICOSE VEIN [None]
  - ALLERGY TO ARTHROPOD STING [None]
  - LOW TURNOVER OSTEOPATHY [None]
  - FOOT FRACTURE [None]
  - BREAST CYST [None]
  - UTERINE PROLAPSE [None]
  - PAIN IN EXTREMITY [None]
  - URINARY TRACT OBSTRUCTION [None]
  - TACHYCARDIA [None]
  - STRESS FRACTURE [None]
  - URINARY TRACT INFECTION [None]
  - TOOTH DISORDER [None]
  - CERUMEN IMPACTION [None]
  - BRONCHITIS [None]
